FAERS Safety Report 11773689 (Version 1)
Quarter: 2015Q4

REPORT INFORMATION
  Report Type: Spontaneous
  Country: GB (occurrence: GB)
  Receive Date: 20151124
  Receipt Date: 20151124
  Transmission Date: 20160304
  Serious: Yes (Other)
  Sender: FDA-Public Use
  Company Number: GB-BAYER-2015-468711

PATIENT
  Sex: Female

DRUGS (6)
  1. ACETYLSALICYLIC ACID({=100 MG) [Suspect]
     Active Substance: ASPIRIN
  2. CLEXANE [Concomitant]
     Active Substance: ENOXAPARIN SODIUM
  3. PROGESTERONE. [Suspect]
     Active Substance: PROGESTERONE
     Dosage: 10 MG, UNK
  4. PREDNISOLONE. [Concomitant]
     Active Substance: PREDNISOLONE
     Dosage: 10 MG, UNK
  5. OESTROGEN [Concomitant]
  6. INTRALIPID [GLYCEROL,GLYCINE MAX OIL,LECITHIN] [Concomitant]
     Route: 042

REACTIONS (5)
  - Premature labour [None]
  - Maternal exposure during pregnancy [None]
  - Infection [None]
  - Preterm premature rupture of membranes [None]
  - Product use issue [None]
